FAERS Safety Report 4745706-X (Version None)
Quarter: 2005Q3

REPORT INFORMATION
  Report Type: 
  Country: None (occurrence: None)
  Receive Date: 20050815
  Receipt Date: 20050815
  Transmission Date: 20060218
  Serious: Yes (Other)
  Sender: FDA-Public Use
  Company Number: None

PATIENT
  Sex: Female
  Weight: 69.8539 kg

DRUGS (3)
  1. GABAPENTIN [Suspect]
     Indication: CONVULSION
     Dosage: ONE CAP TID PO } 6 YRS SEE IMAGE
     Route: 048
  2. DILANTIN [Concomitant]
  3. PHENOBARBATOL [Concomitant]

REACTIONS (5)
  - CONVULSION [None]
  - DIARRHOEA [None]
  - HEADACHE [None]
  - PHARMACEUTICAL PRODUCT COMPLAINT [None]
  - RASH ERYTHEMATOUS [None]
